FAERS Safety Report 4506278-8 (Version None)
Quarter: 2004Q4

REPORT INFORMATION
  Report Type: 
  Country: None (occurrence: None)
  Receive Date: 20041119
  Receipt Date: 20041115
  Transmission Date: 20050328
  Serious: Yes (Death, Hospitalization)
  Sender: FDA-Public Use
  Company Number: US-MERCK-0411USA02490

PATIENT
  Sex: Male

DRUGS (2)
  1. VIOXX [Suspect]
     Route: 048
     Dates: end: 20040203
  2. [THERAPY UNSPECIFIED] [Suspect]
     Indication: ANTICOAGULANT THERAPY
     Route: 065

REACTIONS (3)
  - DRUG INTERACTION [None]
  - LEUKAEMIA [None]
  - TRAUMATIC HAEMORRHAGE [None]
